FAERS Safety Report 23227106 (Version 1)
Quarter: 2023Q4

REPORT INFORMATION
  Report Type: Report from Study
  Country: AU (occurrence: AU)
  Receive Date: 20231124
  Receipt Date: 20231124
  Transmission Date: 20240109
  Serious: Yes (Other)
  Sender: FDA-Public Use
  Company Number: AU-002147023-NVSC2023AU248833

PATIENT

DRUGS (1)
  1. LEQVIO [Suspect]
     Active Substance: INCLISIRAN SODIUM
     Indication: Product used for unknown indication
     Dosage: UNK (VIA PRE-FILLED SYRINGE WITH X225 ULTRASAFE PLUS NEEDLE SAFETY DEVICE)
     Route: 065

REACTIONS (8)
  - Dementia [Unknown]
  - Feeling abnormal [Unknown]
  - Anger [Unknown]
  - Memory impairment [Unknown]
  - Apathy [Unknown]
  - Thinking abnormal [Unknown]
  - Fear [Unknown]
  - Disturbance in attention [Unknown]
